FAERS Safety Report 10994752 (Version 1)
Quarter: 2015Q2

REPORT INFORMATION
  Report Type: Spontaneous
  Country: GB (occurrence: GB)
  Receive Date: 20150407
  Receipt Date: 20150407
  Transmission Date: 20150821
  Serious: Yes (Disabling)
  Sender: FDA-Public Use
  Company Number: GB-TEVA-552960ACC

PATIENT
  Age: 9 Year
  Sex: Female
  Weight: 33 kg

DRUGS (6)
  1. PHENOBARBITAL. [Concomitant]
     Active Substance: PHENOBARBITAL
  2. PERAMPANEL [Suspect]
     Active Substance: PERAMPANEL
  3. LACOSAMIDE [Concomitant]
     Active Substance: LACOSAMIDE
  4. FLUOXETINE [Concomitant]
     Active Substance: FLUOXETINE\FLUOXETINE HYDROCHLORIDE
  5. CLARITHROMYCIN. [Suspect]
     Active Substance: CLARITHROMYCIN
  6. CLOBAZAM [Concomitant]
     Active Substance: CLOBAZAM

REACTIONS (1)
  - Balance disorder [Recovered/Resolved]

NARRATIVE: CASE EVENT DATE: 20150312
